FAERS Safety Report 4897963-7 (Version None)
Quarter: 2006Q1

REPORT INFORMATION
  Report Type: 
  Country: None (occurrence: None)
  Receive Date: 20060130
  Receipt Date: 20060120
  Transmission Date: 20060701
  Serious: Yes (Hospitalization)
  Sender: FDA-Public Use
  Company Number: 200510423BFR

PATIENT
  Age: 82 Year
  Sex: Male

DRUGS (7)
  1. CALCIDIA (CALCIUM CARBONATE) [Suspect]
     Dosage: ORAL
     Route: 048
     Dates: start: 20050216
  2. CIPROFLOXACIN [Suspect]
  3. ASPEGIC 1000 [Suspect]
     Dosage: 250 MG, TOTAL DAILY, ORAL
     Route: 048
     Dates: start: 20050121
  4. FUROSEMIDE [Suspect]
     Dosage: 40 MG, TOTAL DAILY, ORAL
     Route: 048
     Dates: start: 20050121
  5. RISORDAN (ISOSORBIDE DINITRATE) [Suspect]
     Dosage: 48 MG, TOTAL DAILY, INTRAVENOUS
     Route: 042
     Dates: start: 20050121, end: 20050124
  6. OFLOXACIN [Suspect]
     Dosage: 200 MG, TOTAL DAILY, ORAL
     Route: 048
     Dates: start: 20050211, end: 20050218
  7. OMEPRAZOLE [Suspect]
     Dosage: 20 MG, TOTAL DAILY, ORAL
     Route: 048
     Dates: start: 20050209, end: 20050226

REACTIONS (4)
  - DERMATITIS EXFOLIATIVE [None]
  - DIALYSIS [None]
  - EOSINOPHILIA [None]
  - SEPTIC SHOCK [None]
